FAERS Safety Report 7132792-5 (Version None)
Quarter: 2010Q4

REPORT INFORMATION
  Report Type: 
  Country: None (occurrence: None)
  Receive Date: 20101202
  Receipt Date: 20101119
  Transmission Date: 20110411
  Serious: No
  Sender: FDA-Public Use
  Company Number: US-PFIZER INC-2010153323

PATIENT
  Sex: Female

DRUGS (2)
  1. DEPO-PROVERA [Suspect]
     Indication: BLOOD OESTROGEN ABNORMAL
     Dosage: UNK
     Route: 030
  2. TEGRETOL [Concomitant]
     Indication: CONVULSION
     Dosage: 600 MG, 2X/DAY
     Route: 048

REACTIONS (1)
  - METRORRHAGIA [None]
